FAERS Safety Report 8606166-1 (Version None)
Quarter: 2012Q3

REPORT INFORMATION
  Report Type: 
  Country: None (occurrence: None)
  Receive Date: 20120820
  Receipt Date: 20120806
  Transmission Date: 20120928
  Serious: No
  Sender: FDA-Public Use
  Company Number: US-ASTRAZENECA-2011SE34592

PATIENT
  Age: 49 Year
  Sex: Female

DRUGS (4)
  1. NEXIUM [Suspect]
     Route: 048
  2. NEXIUM [Suspect]
     Route: 048
  3. ZANTAC [Concomitant]
  4. PRILOSEC OTC [Suspect]
     Route: 048

REACTIONS (11)
  - MALAISE [None]
  - DYSPEPSIA [None]
  - DISEASE RECURRENCE [None]
  - GASTROOESOPHAGEAL REFLUX DISEASE [None]
  - DRUG INEFFECTIVE [None]
  - WEIGHT DECREASED [None]
  - ULCER [None]
  - SLEEP APNOEA SYNDROME [None]
  - CHOKING [None]
  - WEIGHT INCREASED [None]
  - DRUG DOSE OMISSION [None]
